FAERS Safety Report 4859990-5 (Version None)
Quarter: 2005Q4

REPORT INFORMATION
  Report Type: 
  Country: None (occurrence: None)
  Receive Date: 20051219
  Receipt Date: 20050404
  Transmission Date: 20060501
  Serious: Yes (Hospitalization, Disabling)
  Sender: FDA-Public Use
  Company Number: US-MERCK-0504USA00715

PATIENT
  Age: 58 Year
  Sex: Male
  Weight: 98 kg

DRUGS (3)
  1. VIOXX [Suspect]
     Indication: ARTHRITIS
     Route: 048
     Dates: start: 20000701, end: 20020201
  2. VIOXX [Suspect]
     Route: 048
     Dates: start: 20000701, end: 20020201
  3. ASPIRIN [Concomitant]
     Route: 065

REACTIONS (3)
  - BACK PAIN [None]
  - MYOCARDIAL INFARCTION [None]
  - NEPHROLITHIASIS [None]
